FAERS Safety Report 10032408 (Version 2)
Quarter: 2014Q1

REPORT INFORMATION
  Report Type: Spontaneous
  Country: CH (occurrence: None)
  Receive Date: 20140320
  Receipt Date: 20140326
  Transmission Date: 20141002
  Serious: Yes (Other)
  Sender: FDA-Public Use
  Company Number: 20140126

PATIENT
  Age: 31 Year
  Sex: Female
  Weight: 57 kg

DRUGS (4)
  1. FERINJECT [Suspect]
     Indication: IRON DEFICIENCY
     Route: 041
     Dates: start: 20140216, end: 20140216
  2. PROTHIUCIL (PROPYLTHIOURACIL) [Concomitant]
  3. TRACTOCILE (ATOSIBAN ACETATE) [Concomitant]
  4. UNASYN (SULTAMICILLIN) [Concomitant]

REACTIONS (4)
  - Anaphylactic reaction [None]
  - Caesarean section [None]
  - Premature delivery [None]
  - Maternal exposure during pregnancy [None]
